FAERS Safety Report 23966455 (Version 1)
Quarter: 2024Q2

REPORT INFORMATION
  Report Type: Spontaneous
  Country: SE (occurrence: SE)
  Receive Date: 20240612
  Receipt Date: 20240612
  Transmission Date: 20240716
  Serious: Yes (Other)
  Sender: FDA-Public Use
  Company Number: None

PATIENT
  Age: 54 Year
  Sex: Female

DRUGS (2)
  1. METHOTREXATE [Suspect]
     Active Substance: METHOTREXATE
     Indication: Dermatitis psoriasiform
     Dosage: 4 TABLETS ON MONDAYS
     Dates: start: 202403, end: 20240423
  2. FOLIC ACID [Concomitant]
     Active Substance: FOLIC ACID
     Dosage: FIVE DAYS A WEEK

REACTIONS (7)
  - Nausea [Unknown]
  - Stomatitis [Unknown]
  - Paraesthesia [Unknown]
  - Skin discomfort [Unknown]
  - Eye pain [Unknown]
  - Headache [Unknown]
  - Ocular discomfort [Unknown]

NARRATIVE: CASE EVENT DATE: 20240401
